FAERS Safety Report 10941900 (Version 2)
Quarter: 2015Q2

REPORT INFORMATION
  Report Type: Spontaneous
  Country: US (occurrence: US)
  Receive Date: 20150322
  Receipt Date: 20150529
  Transmission Date: 20150821
  Serious: Yes (Other)
  Sender: FDA-Public Use
  Company Number: US-JNJFOC-20131106998

PATIENT
  Sex: Male

DRUGS (3)
  1. ACE-INHIBITOR [Concomitant]
     Active Substance: UNSPECIFIED INGREDIENT
  2. ANGIOTENSIN RECEPTOR BLOCKER NOS [Concomitant]
     Active Substance: UNSPECIFIED INGREDIENT
  3. INVOKANA [Suspect]
     Active Substance: CANAGLIFLOZIN
     Indication: PRODUCT USED FOR UNKNOWN INDICATION

REACTIONS (1)
  - Glomerular filtration rate decreased [Unknown]
